FAERS Safety Report 8067559-7 (Version None)
Quarter: 2012Q1

REPORT INFORMATION
  Report Type: 
  Country: None (occurrence: None)
  Receive Date: 20120124
  Receipt Date: 20120118
  Transmission Date: 20120608
  Serious: Yes (Other)
  Sender: FDA-Public Use
  Company Number: US-JNJFOC-20120108013

PATIENT
  Age: 58 Year
  Sex: Male

DRUGS (3)
  1. LEVAQUIN [Suspect]
     Indication: BACTERIAL INFECTION
     Route: 048
     Dates: start: 20070101
  2. LEVAQUIN [Suspect]
     Route: 048
     Dates: start: 20080101
  3. LEVAQUIN [Suspect]
     Route: 048
     Dates: start: 20050101

REACTIONS (4)
  - MENISCUS LESION [None]
  - ROTATOR CUFF SYNDROME [None]
  - TENDON RUPTURE [None]
  - BURSITIS [None]
